FAERS Safety Report 8923385 (Version 5)
Quarter: 2015Q1

REPORT INFORMATION
  Report Type: Spontaneous
  Country: JP (occurrence: JP)
  Receive Date: 20121123
  Receipt Date: 20150123
  Transmission Date: 20150721
  Serious: Yes (Other)
  Sender: FDA-Public Use
  Company Number: PHHY2012JP105828

PATIENT
  Age: 41 Year
  Sex: Male
  Weight: 55 kg

DRUGS (61)
  1. CLOZARIL [Suspect]
     Active Substance: CLOZAPINE
     Dosage: 125 MG, QD
     Route: 048
     Dates: start: 20101209, end: 20101213
  2. TRIHEXYPHENIDYL HYDROCHLORIDE. [Concomitant]
     Active Substance: TRIHEXYPHENIDYL HYDROCHLORIDE
     Indication: SCHIZOPHRENIA, PARANOID TYPE
     Dosage: 8 MG, UNK
     Route: 048
     Dates: start: 20101201
  3. LAMOTRIGINE. [Concomitant]
     Active Substance: LAMOTRIGINE
     Indication: SEIZURE
     Dosage: 25 MG, UNK
     Route: 048
     Dates: start: 20111031
  4. LAMOTRIGINE. [Concomitant]
     Active Substance: LAMOTRIGINE
     Dosage: 50 MG, UNK
     Route: 048
     Dates: end: 20111201
  5. HALOPERIDOL. [Concomitant]
     Active Substance: HALOPERIDOL
     Dosage: 5 MG, UNK
     Route: 048
     Dates: start: 20101201, end: 20101223
  6. BIPERIDEN HYDROCHLORIDE [Concomitant]
     Active Substance: BIPERIDEN HYDROCHLORIDE
     Dosage: 1 MG, UNK
     Route: 048
     Dates: end: 20101209
  7. CLOZARIL [Suspect]
     Active Substance: CLOZAPINE
     Dosage: 500 MG, QD
     Route: 048
     Dates: start: 20110928, end: 20120124
  8. SODIUM VALPROATE [Concomitant]
     Active Substance: VALPROATE SODIUM
     Dosage: 400 MG, UNK
     Route: 048
  9. INVEGA [Concomitant]
     Active Substance: PALIPERIDONE
     Indication: PRODUCT USED FOR UNKNOWN INDICATION
     Dosage: 9 MG, UNK
     Route: 065
  10. CLOZARIL [Suspect]
     Active Substance: CLOZAPINE
     Dosage: 600 MG, QD
     Route: 048
     Dates: start: 20110518, end: 20110927
  11. DIAZEPAM. [Concomitant]
     Active Substance: DIAZEPAM
     Dosage: 8 MG, UNK
     Route: 048
  12. DIAZEPAM. [Concomitant]
     Active Substance: DIAZEPAM
     Dosage: 2 MG, UNK
     Route: 048
     Dates: end: 20111110
  13. SODIUM VALPROATE [Concomitant]
     Active Substance: VALPROATE SODIUM
     Dosage: 200 MG, UNK
     Route: 048
  14. SODIUM VALPROATE [Concomitant]
     Active Substance: VALPROATE SODIUM
     Dosage: 1000 MG, UNK
     Route: 048
  15. CLOZARIL [Suspect]
     Active Substance: CLOZAPINE
     Indication: SCHIZOPHRENIA, PARANOID TYPE
     Dosage: 12.5 MG, QD
     Route: 048
     Dates: start: 20101201, end: 20101201
  16. CLOZARIL [Suspect]
     Active Substance: CLOZAPINE
     Dosage: 50 MG, QD
     Route: 048
     Dates: start: 20101206, end: 20101206
  17. CLOZARIL [Suspect]
     Active Substance: CLOZAPINE
     Dosage: 175 MG, QD
     Route: 048
     Dates: start: 20101215, end: 20101215
  18. CLOZARIL [Suspect]
     Active Substance: CLOZAPINE
     Dosage: 400 MG, QD
     Route: 048
     Dates: start: 20110105, end: 20110111
  19. CLOZARIL [Suspect]
     Active Substance: CLOZAPINE
     Dosage: 400 MG, QD
     Route: 048
     Dates: start: 20110420, end: 20110511
  20. CLOZARIL [Suspect]
     Active Substance: CLOZAPINE
     Dosage: 600 MG, QD
     Route: 048
     Dates: start: 20120125
  21. QUAZEPAM. [Concomitant]
     Active Substance: QUAZEPAM
     Indication: SCHIZOPHRENIA, PARANOID TYPE
     Dosage: 15 MG, UNK
     Route: 048
     Dates: start: 20110128
  22. TRIHEXYPHENIDYL HYDROCHLORIDE. [Concomitant]
     Active Substance: TRIHEXYPHENIDYL HYDROCHLORIDE
     Dosage: 6 MG, UNK
     Route: 048
  23. DIAZEPAM. [Concomitant]
     Active Substance: DIAZEPAM
     Dosage: 6 MG, UNK
     Route: 048
  24. HALOPERIDOL. [Concomitant]
     Active Substance: HALOPERIDOL
     Indication: PRODUCT USED FOR UNKNOWN INDICATION
     Dosage: 6 MG, UNK
     Dates: start: 20101201, end: 20101202
  25. FLUNITRAZEPAM [Concomitant]
     Active Substance: FLUNITRAZEPAM
     Indication: SCHIZOPHRENIA, PARANOID TYPE
     Dosage: 2 MG, UNK
     Route: 048
     Dates: start: 20120911
  26. MIDODRINE HYDROCHLORIDE. [Concomitant]
     Active Substance: MIDODRINE HYDROCHLORIDE
     Indication: PROPHYLAXIS
     Dosage: 6 MG, UNK
     Route: 048
     Dates: start: 20111202
  27. CLOZARIL [Suspect]
     Active Substance: CLOZAPINE
     Dosage: 250 MG, QD
     Route: 048
     Dates: start: 20101222, end: 20101226
  28. CLOZARIL [Suspect]
     Active Substance: CLOZAPINE
     Dosage: 450 MG, QD
     Route: 048
     Dates: start: 20110112, end: 20110125
  29. CLOZARIL [Suspect]
     Active Substance: CLOZAPINE
     Dosage: 500 MG, QD
     Route: 048
     Dates: start: 20110126, end: 20110208
  30. ZOPICLONE [Concomitant]
     Active Substance: ZOPICLONE
     Indication: SCHIZOPHRENIA, PARANOID TYPE
     Dosage: 7.5 MG, UNK
     Route: 048
     Dates: start: 20101201
  31. SODIUM VALPROATE [Concomitant]
     Active Substance: VALPROATE SODIUM
     Indication: SCHIZOPHRENIA, PARANOID TYPE
     Dosage: 600 MG, UNK
     Route: 048
     Dates: start: 20101201
  32. SODIUM VALPROATE [Concomitant]
     Active Substance: VALPROATE SODIUM
     Dosage: 600 MG, UNK
     Route: 048
  33. SODIUM VALPROATE [Concomitant]
     Active Substance: VALPROATE SODIUM
     Dosage: 1200 MG, UNK
     Route: 048
     Dates: end: 20111201
  34. CLOZARIL [Suspect]
     Active Substance: CLOZAPINE
     Dosage: 25 MG, QD
     Route: 048
     Dates: start: 20101202, end: 201012
  35. CLOZARIL [Suspect]
     Active Substance: CLOZAPINE
     Dosage: 75 MG, QD
     Route: 048
     Dates: start: 20101207, end: 20101207
  36. CLOZARIL [Suspect]
     Active Substance: CLOZAPINE
     Dosage: 100 MG, QD
     Route: 048
     Dates: start: 20101208, end: 20101208
  37. CLOZARIL [Suspect]
     Active Substance: CLOZAPINE
     Dosage: 150 MG, QD
     Route: 048
     Dates: start: 20101214, end: 20101214
  38. CLOZARIL [Suspect]
     Active Substance: CLOZAPINE
     Dosage: 300 MG, QD
     Route: 048
     Dates: start: 20101227, end: 20110104
  39. CLOZARIL [Suspect]
     Active Substance: CLOZAPINE
     Dosage: 600 MG, QD
     Route: 048
     Dates: start: 20110209, end: 20110412
  40. QUAZEPAM. [Concomitant]
     Active Substance: QUAZEPAM
     Dosage: 5 MG, UNK
     Route: 048
  41. TRIHEXYPHENIDYL HYDROCHLORIDE. [Concomitant]
     Active Substance: TRIHEXYPHENIDYL HYDROCHLORIDE
     Dosage: 5 MG, UNK
     Route: 048
  42. TRIHEXYPHENIDYL HYDROCHLORIDE. [Concomitant]
     Active Substance: TRIHEXYPHENIDYL HYDROCHLORIDE
     Dosage: 2 MG, UNK
     Route: 048
     Dates: end: 20110310
  43. DIAZEPAM. [Concomitant]
     Active Substance: DIAZEPAM
     Dosage: 10 MG, UNK
     Route: 048
  44. DIAZEPAM. [Concomitant]
     Active Substance: DIAZEPAM
     Dosage: 4 MG, UNK
     Route: 048
  45. SODIUM VALPROATE [Concomitant]
     Active Substance: VALPROATE SODIUM
     Dosage: 800 MG, UNK
     Route: 048
  46. SODIUM VALPROATE [Concomitant]
     Active Substance: VALPROATE SODIUM
     Dosage: 1400 MG, UNK
     Route: 048
  47. CLOZARIL [Suspect]
     Active Substance: CLOZAPINE
     Dosage: 200 MG, QD
     Route: 048
     Dates: start: 20101216, end: 20101216
  48. CLOZARIL [Suspect]
     Active Substance: CLOZAPINE
     Dosage: 500 MG, QD
     Route: 048
     Dates: start: 20110413, end: 20110419
  49. QUAZEPAM. [Concomitant]
     Active Substance: QUAZEPAM
     Dosage: 15 MG, UNK
     Route: 048
     Dates: end: 20110818
  50. TRIHEXYPHENIDYL HYDROCHLORIDE. [Concomitant]
     Active Substance: TRIHEXYPHENIDYL HYDROCHLORIDE
     Dosage: 3 MG, UNK
     Route: 048
  51. DIAZEPAM. [Concomitant]
     Active Substance: DIAZEPAM
     Indication: SCHIZOPHRENIA, PARANOID TYPE
     Dosage: 15 MG, UNK
     Route: 048
     Dates: start: 20101201
  52. DIAZEPAM. [Concomitant]
     Active Substance: DIAZEPAM
     Dosage: 6 MG, UNK
     Route: 048
  53. DIAZEPAM. [Concomitant]
     Active Substance: DIAZEPAM
     Dosage: 5 MG, UNK
     Route: 048
  54. DIAZEPAM. [Concomitant]
     Active Substance: DIAZEPAM
     Dosage: 10 MG, UNK
     Route: 048
  55. SODIUM VALPROATE [Concomitant]
     Active Substance: VALPROATE SODIUM
     Dosage: 400 MG, UNK
     Route: 048
  56. SODIUM VALPROATE [Concomitant]
     Active Substance: VALPROATE SODIUM
     Dosage: 1600 MG, UNK
     Route: 048
  57. NITRAZEPAM [Concomitant]
     Active Substance: NITRAZEPAM
     Indication: SCHIZOPHRENIA, PARANOID TYPE
     Dosage: 10 MG, UNK
     Route: 048
     Dates: start: 20101201
  58. CLOZARIL [Suspect]
     Active Substance: CLOZAPINE
     Dosage: 500 MG, QD
     Route: 048
     Dates: start: 20110512, end: 20110517
  59. MOSAPRIDE CITRATE [Concomitant]
     Active Substance: MOSAPRIDE CITRATE
     Indication: PRODUCT USED FOR UNKNOWN INDICATION
     Dosage: 15 MG, UNK
     Route: 048
     Dates: start: 20110815
  60. NITRAZEPAM [Concomitant]
     Active Substance: NITRAZEPAM
     Dosage: 10 MG, UNK
     Route: 048
     Dates: end: 20120910
  61. BIPERIDEN HYDROCHLORIDE [Concomitant]
     Active Substance: BIPERIDEN HYDROCHLORIDE
     Indication: SCHIZOPHRENIA, PARANOID TYPE
     Dosage: 2 MG, UNK
     Route: 048
     Dates: start: 20101201

REACTIONS (21)
  - Hallucination [Not Recovered/Not Resolved]
  - Eosinophil count decreased [Unknown]
  - White blood cell count decreased [Recovered/Resolved]
  - Heart rate increased [Unknown]
  - Orthostatic hypotension [Recovering/Resolving]
  - Salivary hypersecretion [Unknown]
  - Paranoia [Not Recovered/Not Resolved]
  - Haemoglobin decreased [Unknown]
  - Body temperature decreased [Unknown]
  - Polyuria [Recovering/Resolving]
  - Thirst [Recovering/Resolving]
  - Polydipsia [Recovering/Resolving]
  - Psychiatric symptom [Not Recovered/Not Resolved]
  - Pollakiuria [Recovering/Resolving]
  - Weight decreased [Recovered/Resolved]
  - Epilepsy [Recovering/Resolving]
  - Compulsions [Recovering/Resolving]
  - Condition aggravated [Not Recovered/Not Resolved]
  - Drug ineffective [Unknown]
  - Obsessive thoughts [Recovering/Resolving]
  - Nasopharyngitis [Recovered/Resolved]

NARRATIVE: CASE EVENT DATE: 2011
